FAERS Safety Report 6035231-0 (Version None)
Quarter: 2009Q1

REPORT INFORMATION
  Report Type: 
  Country: None (occurrence: None)
  Receive Date: 20090109
  Receipt Date: 20081205
  Transmission Date: 20090719
  Serious: Yes (Hospitalization)
  Sender: FDA-Public Use
  Company Number: 126556

PATIENT
  Age: 61 Year
  Sex: Male

DRUGS (2)
  1. PROPOFOL [Suspect]
     Indication: SEDATION
     Dosage: 7.8 G, 4 TIMES DAILY, INTRAVENOUS
     Route: 042
     Dates: start: 20081027, end: 20081105
  2. FENTANYL [Concomitant]

REACTIONS (1)
  - JAUNDICE [None]
